FAERS Safety Report 6274111-2 (Version None)
Quarter: 2009Q3

REPORT INFORMATION
  Report Type: 
  Country: None (occurrence: None)
  Receive Date: 20090720
  Receipt Date: 20090714
  Transmission Date: 20100115
  Serious: Yes (Death)
  Sender: FDA-Public Use
  Company Number: PHHY2009BR29015

PATIENT
  Sex: Male

DRUGS (2)
  1. EXFORGE [Suspect]
     Dosage: 320/5 MG
     Route: 048
  2. RASILEZ [Suspect]
     Dosage: 150 MG
     Route: 048

REACTIONS (1)
  - DEATH [None]
